FAERS Safety Report 8915973 (Version 3)
Quarter: 2012Q4

REPORT INFORMATION
  Report Type: 
  Country: US (occurrence: US)
  Receive Date: 20121119
  Receipt Date: 20121221
  Transmission Date: 20130627
  Serious: Yes (Death, Hospitalization)
  Sender: FDA-Public Use
  Company Number: US-GLAXOSMITHKLINE-A1000043A

PATIENT
  Age: 53 Year
  Sex: Female

DRUGS (3)
  1. FLOLAN [Suspect]
     Dosage: 6NGKM Continuous
     Route: 042
     Dates: start: 20121024
  2. REVATIO [Concomitant]
  3. ASPIRIN [Concomitant]

REACTIONS (6)
  - Death [Fatal]
  - Heart rate increased [Unknown]
  - Hypotension [Unknown]
  - Fatigue [Not Recovered/Not Resolved]
  - Pain in extremity [Not Recovered/Not Resolved]
  - Anaemia [Unknown]
